FAERS Safety Report 8037927 (Version 16)
Quarter: 2014Q4

REPORT INFORMATION
  Report Type: Spontaneous
  Country: US (occurrence: US)
  Receive Date: 20110715
  Receipt Date: 20141211
  Transmission Date: 20150529
  Serious: Yes (Hospitalization, Other)
  Sender: FDA-Public Use
  Company Number: US-ASTRAZENECA-2010SE05175

PATIENT
  Age: 21275 Day
  Sex: Female
  Weight: 51.7 kg

DRUGS (82)
  1. SEROQUEL [Suspect]
     Active Substance: QUETIAPINE FUMARATE
     Indication: ANXIETY
     Route: 048
     Dates: start: 2008
  2. SEROQUEL [Suspect]
     Active Substance: QUETIAPINE FUMARATE
     Indication: SEIZURE
     Route: 048
     Dates: start: 200911
  3. SEROQUEL [Suspect]
     Active Substance: QUETIAPINE FUMARATE
     Indication: ANXIETY
     Route: 048
  4. SEROQUEL [Suspect]
     Active Substance: QUETIAPINE FUMARATE
     Indication: SLEEP DISORDER
     Route: 048
  5. SEROQUEL [Suspect]
     Active Substance: QUETIAPINE FUMARATE
     Indication: SLEEP DISORDER
     Route: 048
  6. SEROQUEL [Suspect]
     Active Substance: QUETIAPINE FUMARATE
     Indication: ANXIETY
     Dosage: 3-4 TABLETS AT NIGHT
     Route: 048
  7. SEROQUEL [Suspect]
     Active Substance: QUETIAPINE FUMARATE
     Indication: SLEEP DISORDER
     Route: 048
     Dates: start: 2012, end: 201411
  8. SEROQUEL [Suspect]
     Active Substance: QUETIAPINE FUMARATE
     Indication: SLEEP DISORDER
     Route: 048
     Dates: start: 201411
  9. LAMICTAL [Concomitant]
     Active Substance: LAMOTRIGINE
     Indication: SEIZURE
     Route: 048
     Dates: start: 2012
  10. DEPAKOTE ER [Concomitant]
     Active Substance: DIVALPROEX SODIUM
     Indication: SEIZURE
     Route: 048
     Dates: start: 2009
  11. DEPAKOTE ER [Concomitant]
     Active Substance: DIVALPROEX SODIUM
     Indication: SLEEP DISORDER
     Route: 048
     Dates: start: 2009
  12. DILANTIN [Concomitant]
     Active Substance: PHENYTOIN
     Indication: SEIZURE
     Dosage: DAILY
     Route: 048
  13. SEROQUEL [Suspect]
     Active Substance: QUETIAPINE FUMARATE
     Indication: SLEEP DISORDER
     Route: 048
     Dates: start: 2009
  14. SEROQUEL [Suspect]
     Active Substance: QUETIAPINE FUMARATE
     Indication: ANXIETY
     Route: 048
     Dates: start: 2009
  15. SEROQUEL [Suspect]
     Active Substance: QUETIAPINE FUMARATE
     Indication: SEIZURE
     Route: 048
  16. SEROQUEL [Suspect]
     Active Substance: QUETIAPINE FUMARATE
     Indication: ANXIETY
     Route: 048
     Dates: start: 201411
  17. LAMICTAL [Concomitant]
     Active Substance: LAMOTRIGINE
     Indication: DEPRESSION
     Route: 048
     Dates: start: 2009
  18. LAMICTAL [Concomitant]
     Active Substance: LAMOTRIGINE
     Indication: SEIZURE
     Route: 048
  19. SEROQUEL [Suspect]
     Active Substance: QUETIAPINE FUMARATE
     Indication: SEIZURE
     Route: 048
  20. SEROQUEL [Suspect]
     Active Substance: QUETIAPINE FUMARATE
     Indication: SEIZURE
     Route: 048
     Dates: start: 2008
  21. SEROQUEL [Suspect]
     Active Substance: QUETIAPINE FUMARATE
     Indication: SLEEP DISORDER
     Route: 048
     Dates: start: 2008
  22. LAMICTAL [Concomitant]
     Active Substance: LAMOTRIGINE
     Indication: DEPRESSION
     Route: 048
  23. LAMICTAL [Concomitant]
     Active Substance: LAMOTRIGINE
     Indication: DEPRESSION
     Route: 048
     Dates: end: 2012
  24. LAMICTAL [Concomitant]
     Active Substance: LAMOTRIGINE
     Indication: DEPRESSION
     Route: 048
  25. DEPAKOTE ER [Concomitant]
     Active Substance: DIVALPROEX SODIUM
     Indication: SLEEP DISORDER
     Route: 048
  26. DEPAKOTE ER [Concomitant]
     Active Substance: DIVALPROEX SODIUM
     Indication: SEIZURE
     Dosage: DAILY
     Route: 048
  27. SEROQUEL [Suspect]
     Active Substance: QUETIAPINE FUMARATE
     Indication: SEIZURE
     Route: 048
     Dates: start: 2009
  28. SEROQUEL [Suspect]
     Active Substance: QUETIAPINE FUMARATE
     Indication: ANXIETY
     Route: 048
     Dates: start: 2010
  29. SEROQUEL [Suspect]
     Active Substance: QUETIAPINE FUMARATE
     Indication: SEIZURE
     Route: 048
     Dates: start: 2011
  30. SEROQUEL [Suspect]
     Active Substance: QUETIAPINE FUMARATE
     Indication: SLEEP DISORDER
     Route: 048
     Dates: start: 2011
  31. SEROQUEL [Suspect]
     Active Substance: QUETIAPINE FUMARATE
     Indication: ANXIETY
     Route: 048
  32. SEROQUEL [Suspect]
     Active Substance: QUETIAPINE FUMARATE
     Indication: ANXIETY
     Route: 048
     Dates: start: 2012, end: 201411
  33. IRON PILL [Suspect]
     Active Substance: IRON
     Indication: ANAEMIA
     Route: 048
     Dates: start: 20130803, end: 20130807
  34. LAMICTAL [Concomitant]
     Active Substance: LAMOTRIGINE
     Indication: ANXIETY
     Route: 048
  35. LAMICTAL [Concomitant]
     Active Substance: LAMOTRIGINE
     Indication: DEPRESSION
     Route: 048
     Dates: start: 2012
  36. SEROQUEL [Suspect]
     Active Substance: QUETIAPINE FUMARATE
     Indication: ANXIETY
     Route: 048
     Dates: start: 2009
  37. SEROQUEL [Suspect]
     Active Substance: QUETIAPINE FUMARATE
     Indication: SEIZURE
     Route: 048
     Dates: start: 2009
  38. SEROQUEL [Suspect]
     Active Substance: QUETIAPINE FUMARATE
     Indication: ANXIETY
     Route: 048
  39. SEROQUEL [Suspect]
     Active Substance: QUETIAPINE FUMARATE
     Indication: SEIZURE
     Route: 048
  40. SEROQUEL [Suspect]
     Active Substance: QUETIAPINE FUMARATE
     Indication: SLEEP DISORDER
     Dosage: 3-4 TABLETS AT NIGHT
     Route: 048
  41. SEROQUEL [Suspect]
     Active Substance: QUETIAPINE FUMARATE
     Indication: SLEEP DISORDER
     Dosage: GENERIC
     Route: 048
  42. LAMICTAL [Concomitant]
     Active Substance: LAMOTRIGINE
     Indication: ANXIETY
     Route: 048
     Dates: start: 2009
  43. LAMICTAL [Concomitant]
     Active Substance: LAMOTRIGINE
     Indication: SEIZURE
     Route: 048
     Dates: end: 2012
  44. LAMICTAL [Concomitant]
     Active Substance: LAMOTRIGINE
     Indication: ANXIETY
     Route: 048
  45. DEPAKOTE ER [Concomitant]
     Active Substance: DIVALPROEX SODIUM
     Indication: SEIZURE
     Route: 048
  46. SEROQUEL [Suspect]
     Active Substance: QUETIAPINE FUMARATE
     Indication: SLEEP DISORDER
     Route: 048
  47. SEROQUEL [Suspect]
     Active Substance: QUETIAPINE FUMARATE
     Indication: ANXIETY
     Route: 048
  48. SEROQUEL [Suspect]
     Active Substance: QUETIAPINE FUMARATE
     Indication: SEIZURE
     Route: 048
     Dates: start: 2010
  49. SEROQUEL [Suspect]
     Active Substance: QUETIAPINE FUMARATE
     Indication: SEIZURE
     Dosage: GENERIC
     Route: 048
  50. LAMICTAL [Concomitant]
     Active Substance: LAMOTRIGINE
     Indication: ANXIETY
     Route: 048
  51. LAMICTAL [Concomitant]
     Active Substance: LAMOTRIGINE
     Indication: DEPRESSION
     Route: 048
  52. LAMICTAL [Concomitant]
     Active Substance: LAMOTRIGINE
     Indication: SEIZURE
     Route: 048
  53. LAMICTAL [Concomitant]
     Active Substance: LAMOTRIGINE
     Indication: ANXIETY
     Dosage: DAILY
     Route: 048
  54. LAMICTAL [Concomitant]
     Active Substance: LAMOTRIGINE
     Indication: ANXIETY
     Route: 048
     Dates: end: 2012
  55. LAMICTAL [Concomitant]
     Active Substance: LAMOTRIGINE
     Indication: SEIZURE
     Route: 048
  56. DEPAKOTE ER [Concomitant]
     Active Substance: DIVALPROEX SODIUM
     Indication: SLEEP DISORDER
     Dosage: DAILY
     Route: 048
  57. DEPAKOTE ER [Concomitant]
     Active Substance: DIVALPROEX SODIUM
     Indication: SLEEP DISORDER
     Route: 048
  58. SEROQUEL [Suspect]
     Active Substance: QUETIAPINE FUMARATE
     Indication: SLEEP DISORDER
     Route: 048
  59. SEROQUEL [Suspect]
     Active Substance: QUETIAPINE FUMARATE
     Indication: SLEEP DISORDER
     Route: 048
     Dates: start: 200911
  60. SEROQUEL [Suspect]
     Active Substance: QUETIAPINE FUMARATE
     Indication: SLEEP DISORDER
     Route: 048
     Dates: start: 2009
  61. SEROQUEL [Suspect]
     Active Substance: QUETIAPINE FUMARATE
     Indication: ANXIETY
     Route: 048
  62. SEROQUEL [Suspect]
     Active Substance: QUETIAPINE FUMARATE
     Indication: SEIZURE
     Dosage: 3-4 TABLETS AT NIGHT
     Route: 048
  63. SEROQUEL [Suspect]
     Active Substance: QUETIAPINE FUMARATE
     Indication: SLEEP DISORDER
     Route: 048
     Dates: start: 2010
  64. SEROQUEL [Suspect]
     Active Substance: QUETIAPINE FUMARATE
     Indication: ANXIETY
     Route: 048
     Dates: start: 2011
  65. SEROQUEL [Suspect]
     Active Substance: QUETIAPINE FUMARATE
     Indication: SEIZURE
     Route: 048
     Dates: start: 2012, end: 201411
  66. LAMICTAL [Concomitant]
     Active Substance: LAMOTRIGINE
     Indication: SEIZURE
     Route: 048
     Dates: start: 2009
  67. LAMICTAL [Concomitant]
     Active Substance: LAMOTRIGINE
     Indication: SEIZURE
     Route: 048
  68. LAMICTAL [Concomitant]
     Active Substance: LAMOTRIGINE
     Indication: DEPRESSION
     Route: 048
  69. LAMICTAL [Concomitant]
     Active Substance: LAMOTRIGINE
     Indication: ANXIETY
     Route: 048
  70. LAMICTAL [Concomitant]
     Active Substance: LAMOTRIGINE
     Indication: SEIZURE
     Dosage: DAILY
     Route: 048
  71. LAMICTAL [Concomitant]
     Active Substance: LAMOTRIGINE
     Indication: DEPRESSION
     Dosage: DAILY
     Route: 048
  72. DEPAKOTE ER [Concomitant]
     Active Substance: DIVALPROEX SODIUM
     Indication: SEIZURE
     Route: 048
  73. SEROQUEL [Suspect]
     Active Substance: QUETIAPINE FUMARATE
     Indication: ANXIETY
     Route: 048
  74. SEROQUEL [Suspect]
     Active Substance: QUETIAPINE FUMARATE
     Indication: ANXIETY
     Route: 048
     Dates: start: 200911
  75. SEROQUEL [Suspect]
     Active Substance: QUETIAPINE FUMARATE
     Indication: SEIZURE
     Route: 048
  76. SEROQUEL [Suspect]
     Active Substance: QUETIAPINE FUMARATE
     Indication: SEIZURE
     Route: 048
  77. SEROQUEL [Suspect]
     Active Substance: QUETIAPINE FUMARATE
     Indication: SLEEP DISORDER
     Route: 048
  78. SEROQUEL [Suspect]
     Active Substance: QUETIAPINE FUMARATE
     Indication: ANXIETY
     Dosage: GENERIC
     Route: 048
  79. SEROQUEL [Suspect]
     Active Substance: QUETIAPINE FUMARATE
     Indication: SEIZURE
     Route: 048
  80. SEROQUEL [Suspect]
     Active Substance: QUETIAPINE FUMARATE
     Indication: SLEEP DISORDER
     Route: 048
  81. SEROQUEL [Suspect]
     Active Substance: QUETIAPINE FUMARATE
     Indication: SEIZURE
     Route: 048
     Dates: start: 201411
  82. LAMICTAL [Concomitant]
     Active Substance: LAMOTRIGINE
     Indication: ANXIETY
     Route: 048
     Dates: start: 2012

REACTIONS (40)
  - Headache [Unknown]
  - Headache [Unknown]
  - Fall [Recovered/Resolved]
  - Cough [Unknown]
  - Pneumonia [Unknown]
  - Road traffic accident [Unknown]
  - Head injury [Unknown]
  - Insomnia [Unknown]
  - Intentional product misuse [Unknown]
  - Pelvic fracture [Unknown]
  - Complex partial seizures [Unknown]
  - Seizure [Unknown]
  - Fatigue [Unknown]
  - Tremor [Unknown]
  - Disorientation [Recovered/Resolved]
  - Amnesia [Unknown]
  - Drug intolerance [Unknown]
  - Drug dose omission [Unknown]
  - Off label use [Unknown]
  - Drug ineffective [Unknown]
  - Bronchitis [Unknown]
  - Sinusitis [Unknown]
  - Dizziness [Recovered/Resolved]
  - Memory impairment [Unknown]
  - Feeding disorder [Unknown]
  - Dry mouth [Unknown]
  - Muscle spasms [Not Recovered/Not Resolved]
  - Stress [Unknown]
  - Joint injury [Recovered/Resolved]
  - Somnolence [Unknown]
  - Movement disorder [Unknown]
  - Product use issue [Not Recovered/Not Resolved]
  - Intentional product use issue [Unknown]
  - Generalised tonic-clonic seizure [Recovered/Resolved]
  - Depression [Unknown]
  - Abnormal sleep-related event [Unknown]
  - Malaise [Unknown]
  - Malaise [Unknown]
  - Gait disturbance [Recovered/Resolved]
  - Nasopharyngitis [Unknown]

NARRATIVE: CASE EVENT DATE: 20110610
